FAERS Safety Report 10082876 (Version 2)
Quarter: 2014Q2

REPORT INFORMATION
  Report Type: Report from Study
  Country: KR (occurrence: KR)
  Receive Date: 20140416
  Receipt Date: 20140416
  Transmission Date: 20141212
  Serious: Yes (Hospitalization)
  Sender: FDA-Public Use
  Company Number: KR-TAKEDA-2014TUS002377

PATIENT
  Sex: 0

DRUGS (3)
  1. FEBURIC [Suspect]
     Indication: HYPERURICAEMIA
     Dosage: 80 MG, QD
     Route: 048
     Dates: start: 20130912
  2. SOLONDO [Concomitant]
     Dosage: UNK
     Dates: start: 20130913, end: 20131116
  3. STILNOX [Concomitant]
     Dosage: UNK
     Dates: start: 20130913, end: 20131116

REACTIONS (6)
  - Pyrexia [Recovering/Resolving]
  - Gastroenteritis [Recovering/Resolving]
  - Abdominal pain [Recovering/Resolving]
  - Diarrhoea [Recovering/Resolving]
  - Cough [Recovering/Resolving]
  - Gouty arthritis [Unknown]
